FAERS Safety Report 5848352-X (Version None)
Quarter: 2008Q3

REPORT INFORMATION
  Report Type: 
  Country: None (occurrence: None)
  Receive Date: 20080814
  Receipt Date: 20080814
  Transmission Date: 20090109
  Serious: Yes (Other)
  Sender: FDA-Public Use
  Company Number: None

PATIENT
  Sex: Female
  Weight: 67.1324 kg

DRUGS (1)
  1. NIFEDICAL XL 60 MG [Suspect]
     Indication: BLOOD PRESSURE
     Dosage: ONE DAILY
     Dates: start: 20080325, end: 20080504

REACTIONS (5)
  - CHEST PAIN [None]
  - EPISTAXIS [None]
  - GINGIVAL PAIN [None]
  - HEADACHE [None]
  - STOMATITIS [None]
